FAERS Safety Report 24693677 (Version 1)
Quarter: 2024Q4

REPORT INFORMATION
  Report Type: Spontaneous
  Country: CN (occurrence: CN)
  Receive Date: 20241204
  Receipt Date: 20241204
  Transmission Date: 20250114
  Serious: No
  Sender: ALKEM
  Company Number: None

PATIENT
  Sex: Male
  Weight: 1.79 kg

DRUGS (15)
  1. LINEZOLID [Suspect]
     Active Substance: LINEZOLID
     Indication: Enterococcal infection
     Dosage: 10 MILLIGRAM/KILOGRAM, TID
     Route: 042
  2. LINEZOLID [Suspect]
     Active Substance: LINEZOLID
     Indication: Meningitis enterococcal
  3. LINEZOLID [Suspect]
     Active Substance: LINEZOLID
     Indication: Meningitis bacterial
  4. LINEZOLID [Suspect]
     Active Substance: LINEZOLID
     Indication: Enterococcal bacteraemia
  5. VANCOMYCIN [Suspect]
     Active Substance: VANCOMYCIN
     Indication: Meningitis bacterial
     Dosage: 15 MILLIGRAM/KILOGRAM, TID
     Route: 042
  6. VANCOMYCIN [Suspect]
     Active Substance: VANCOMYCIN
     Indication: Meningitis enterococcal
     Dosage: 10 MILLIGRAM/KILOGRAM, BID (REDUCED DOSE)
     Route: 042
  7. VANCOMYCIN [Suspect]
     Active Substance: VANCOMYCIN
     Indication: Enterococcal bacteraemia
     Dosage: 10 MILLIGRAM/KILOGRAM, TID
     Route: 042
  8. VANCOMYCIN [Suspect]
     Active Substance: VANCOMYCIN
     Indication: Infection
  9. CEFTAZIDIME [Suspect]
     Active Substance: CEFTAZIDIME
     Indication: Infection
     Dosage: UNK
     Route: 065
  10. CEFEPIME HYDROCHLORIDE\TAZOBACTAM SODIUM [Suspect]
     Active Substance: CEFEPIME HYDROCHLORIDE\TAZOBACTAM SODIUM
     Indication: Infection
     Dosage: UNK
     Route: 065
  11. MEROPENEM [Suspect]
     Active Substance: MEROPENEM
     Indication: Meningitis bacterial
     Dosage: 40 MILLIGRAM/KILOGRAM, TID
     Route: 042
  12. MEROPENEM [Suspect]
     Active Substance: MEROPENEM
     Indication: Meningitis enterococcal
     Dosage: 40 MILLIGRAM/KILOGRAM, TID (0.09 GRAM)
     Route: 042
  13. MEROPENEM [Suspect]
     Active Substance: MEROPENEM
     Indication: Respiratory arrest
  14. MEROPENEM [Suspect]
     Active Substance: MEROPENEM
     Indication: Meningitis bacterial
  15. MEROPENEM [Suspect]
     Active Substance: MEROPENEM
     Indication: Infection

REACTIONS (2)
  - Gastrointestinal disorder [Unknown]
  - Platelet count decreased [Recovered/Resolved]
